FAERS Safety Report 9038620 (Version 3)
Quarter: 2013Q2

REPORT INFORMATION
  Report Type: Spontaneous
  Country: FR (occurrence: FR)
  Receive Date: 20130129
  Receipt Date: 20130405
  Transmission Date: 20140414
  Serious: Yes (Death, Hospitalization, Other)
  Sender: FDA-Public Use
  Company Number: FR-BRISTOL-MYERS SQUIBB COMPANY-17319054

PATIENT
  Age: 82 Year
  Sex: Male

DRUGS (8)
  1. ELIQUIS [Suspect]
     Indication: THROMBOSIS PROPHYLAXIS
     Dosage: FROM 15-JAN-2013 TO 23-JAN-2013
     Route: 048
     Dates: start: 201301, end: 201301
  2. ELIQUIS [Suspect]
     Indication: DEEP VEIN THROMBOSIS
     Dosage: FROM 15-JAN-2013 TO 23-JAN-2013
     Route: 048
     Dates: start: 201301, end: 201301
  3. METOPROLOL [Concomitant]
     Indication: ISCHAEMIC CARDIOMYOPATHY
     Route: 048
  4. KARDEGIC [Concomitant]
     Indication: ISCHAEMIC CARDIOMYOPATHY
     Route: 048
  5. EZETROL [Concomitant]
     Indication: DYSLIPIDAEMIA
     Route: 048
  6. METFORMINE [Concomitant]
     Indication: TYPE 2 DIABETES MELLITUS
     Route: 048
  7. CANDESARTAN [Concomitant]
     Indication: ISCHAEMIC CARDIOMYOPATHY
     Route: 048
  8. AMLODIPINE [Concomitant]
     Indication: HYPERTENSION
     Route: 048

REACTIONS (4)
  - Pulmonary embolism [Fatal]
  - Shock [Fatal]
  - Arrhythmia [Unknown]
  - Sepsis [Unknown]
